FAERS Safety Report 9752791 (Version 1)
Quarter: 2013Q4

REPORT INFORMATION
  Report Type: Spontaneous
  Country: US (occurrence: None)
  Receive Date: 20131211
  Receipt Date: 20131211
  Transmission Date: 20140711
  Serious: Yes (Hospitalization)
  Sender: FDA-Public Use
  Company Number: FK201305263

PATIENT
  Age: 43 Year
  Sex: Male

DRUGS (5)
  1. BLEOMYCIN [Suspect]
     Indication: PRODUCT USED FOR UNKNOWN INDICATION
  2. DACARBAZINE [Suspect]
     Indication: PRODUCT USED FOR UNKNOWN INDICATION
  3. DOXORUBICIN (MANUFACTURER UNKNOWN) (DOXORUBICIN HYDROCHLORIDE) (DOXORUBICIN HYDROCHLORIDE) [Suspect]
     Indication: PRODUCT USED FOR UNKNOWN INDICATION
  4. VINBLASTINE [Suspect]
     Indication: PRODUCT USED FOR UNKNOWN INDICATION
  5. OXYCODONE/PARACETAMOL [Suspect]
     Indication: PRODUCT USED FOR UNKNOWN INDICATION

REACTIONS (1)
  - Clostridium difficile infection [None]
